FAERS Safety Report 5385345-3 (Version None)
Quarter: 2007Q3

REPORT INFORMATION
  Report Type: 
  Country: None (occurrence: None)
  Receive Date: 20070709
  Receipt Date: 20070709
  Transmission Date: 20080115
  Serious: Yes (Other)
  Sender: FDA-Public Use
  Company Number: None

PATIENT
  Sex: Female
  Weight: 58.9676 kg

DRUGS (1)
  1. MEFLOQUINE [Suspect]
     Indication: MALARIA PROPHYLAXIS
     Dosage: ONCE PER WEEK PO
     Route: 048
     Dates: start: 20070515, end: 20070630

REACTIONS (6)
  - DIZZINESS [None]
  - INSOMNIA [None]
  - IRRITABILITY [None]
  - MOOD SWINGS [None]
  - NIGHTMARE [None]
  - SLEEP DISORDER [None]
